FAERS Safety Report 21950186 (Version 13)
Quarter: 2024Q1

REPORT INFORMATION
  Report Type: Report from Study
  Country: MX (occurrence: MX)
  Receive Date: 20230203
  Receipt Date: 20240220
  Transmission Date: 20240409
  Serious: Yes (Life-Threatening, Other)
  Sender: FDA-Public Use
  Company Number: MX-002147023-NVSC2022MX180271

PATIENT
  Age: 68 Year
  Sex: Female
  Weight: 56 kg

DRUGS (8)
  1. TASIGNA [Suspect]
     Active Substance: NILOTINIB
     Indication: Chronic myeloid leukaemia
     Dosage: 800 MG, QD (2 YEARS AND 2 OR 3 MONTHS)
     Route: 048
  2. TASIGNA [Suspect]
     Active Substance: NILOTINIB
     Dosage: 400 MG, Q12H
     Route: 065
  3. TASIGNA [Suspect]
     Active Substance: NILOTINIB
     Dosage: UNK
     Route: 048
  4. TASIGNA [Suspect]
     Active Substance: NILOTINIB
     Dosage: 600 G (AS REPORTED BY THE PATIENT)
     Route: 048
  5. TASIGNA [Suspect]
     Active Substance: NILOTINIB
     Dosage: 200 G (AS REPORTED BY THE PATIENT) (5 MONTHS AGO)
     Route: 048
  6. TASIGNA [Suspect]
     Active Substance: NILOTINIB
     Dosage: 3 DOSAGE FORM
     Route: 048
  7. TASIGNA [Suspect]
     Active Substance: NILOTINIB
     Dosage: 600 MG
     Route: 065
  8. DICLOFENAC [Suspect]
     Active Substance: DICLOFENAC
     Indication: Product used for unknown indication
     Dosage: UNK
     Route: 065

REACTIONS (100)
  - Platelet count decreased [Unknown]
  - Pain [Unknown]
  - Hepatitis [Unknown]
  - Nausea [Unknown]
  - Platelet disorder [Unknown]
  - Discomfort [Unknown]
  - Haemarthrosis [Unknown]
  - Anxiety [Unknown]
  - Abdominal discomfort [Unknown]
  - Haemoglobin decreased [Unknown]
  - Renal pain [Unknown]
  - Gait disturbance [Unknown]
  - Tongue discomfort [Not Recovered/Not Resolved]
  - Oral discomfort [Unknown]
  - Vulvovaginal burning sensation [Not Recovered/Not Resolved]
  - Blood iron decreased [Unknown]
  - Lactose intolerance [Unknown]
  - Ear swelling [Unknown]
  - Skin mass [Unknown]
  - Swelling face [Unknown]
  - Malaise [Unknown]
  - Pruritus [Recovering/Resolving]
  - Contusion [Unknown]
  - Joint swelling [Unknown]
  - Blood pressure decreased [Unknown]
  - Muscle spasms [Unknown]
  - Eating disorder [Unknown]
  - Blood glucose decreased [Unknown]
  - Headache [Unknown]
  - Haemorrhoids [Recovering/Resolving]
  - Hepatic pain [Unknown]
  - Inflammation [Unknown]
  - Influenza [Unknown]
  - Hunger [Unknown]
  - Gallbladder disorder [Unknown]
  - COVID-19 [Recovering/Resolving]
  - Infection [Unknown]
  - Vaginal cyst [Unknown]
  - Catarrh [Unknown]
  - Productive cough [Unknown]
  - Scar [Not Recovered/Not Resolved]
  - Feeling abnormal [Unknown]
  - Scoliosis [Unknown]
  - Hair texture abnormal [Recovered/Resolved]
  - Oral disorder [Unknown]
  - Thirst [Unknown]
  - Basophil count decreased [Unknown]
  - Basophil count increased [Unknown]
  - Constipation [Unknown]
  - Renal disorder [Unknown]
  - Oropharyngeal discomfort [Unknown]
  - Red blood cell count decreased [Unknown]
  - Osteoarthritis [Unknown]
  - Mean cell volume increased [Unknown]
  - Arthropathy [Unknown]
  - Procedural pain [Unknown]
  - Weight increased [Unknown]
  - Hypersensitivity [Unknown]
  - Spinal pain [Unknown]
  - Abdominal pain [Not Recovered/Not Resolved]
  - Ear pain [Unknown]
  - Oropharyngeal pain [Unknown]
  - Arthralgia [Unknown]
  - Gastrointestinal inflammation [Unknown]
  - Red blood cell count increased [Unknown]
  - Throat irritation [Unknown]
  - Weight decreased [Unknown]
  - Blood glucose increased [Unknown]
  - Asthenia [Unknown]
  - Flatulence [Unknown]
  - Dyspepsia [Unknown]
  - Gastritis [Recovered/Resolved]
  - Blood cholesterol increased [Unknown]
  - Nasopharyngitis [Unknown]
  - Cough [Unknown]
  - Fatigue [Unknown]
  - Somnolence [Recovering/Resolving]
  - Haemoglobin increased [Unknown]
  - Dry skin [Unknown]
  - Anaemia [Recovering/Resolving]
  - Diarrhoea [Unknown]
  - Paraesthesia [Unknown]
  - Gastritis [Unknown]
  - Neck pain [Unknown]
  - Vertigo [Unknown]
  - Tachycardia [Unknown]
  - Drug hypersensitivity [Unknown]
  - Pain in extremity [Unknown]
  - Fall [Unknown]
  - Ligament rupture [Unknown]
  - Intervertebral disc disorder [Unknown]
  - Feeling of despair [Unknown]
  - Illness [Unknown]
  - Insomnia [Unknown]
  - Movement disorder [Unknown]
  - Stress [Unknown]
  - Anger [Unknown]
  - Depressed mood [Unknown]
  - Incorrect dose administered [Unknown]
  - Inappropriate schedule of product administration [Unknown]

NARRATIVE: CASE EVENT DATE: 20220804
